FAERS Safety Report 7313565-7 (Version None)
Quarter: 2011Q1

REPORT INFORMATION
  Report Type: 
  Country: None (occurrence: None)
  Receive Date: 20110225
  Receipt Date: 20110212
  Transmission Date: 20110831
  Serious: Yes (Hospitalization, Other)
  Sender: FDA-Public Use
  Company Number: US-PAR PHARMACEUTICAL, INC-2011SCPR002688

PATIENT
  Age: 62 Year
  Sex: Female

DRUGS (2)
  1. OMEPRAZOLE [Concomitant]
     Indication: PEPTIC ULCER
     Dosage: UNK
     Route: 065
  2. IBUPROFEN [Suspect]
     Indication: PLANTAR FASCIITIS
     Dosage: 600 MG, QD
     Route: 065

REACTIONS (1)
  - GASTROINTESTINAL DISORDER [None]
